FAERS Safety Report 6368754-5 (Version None)
Quarter: 2009Q3

REPORT INFORMATION
  Report Type: 
  Country: None (occurrence: None)
  Receive Date: 20090916
  Receipt Date: 20090909
  Transmission Date: 20100115
  Serious: Yes (Hospitalization)
  Sender: FDA-Public Use
  Company Number: 2008AL007418

PATIENT
  Age: 70 Year
  Sex: Female

DRUGS (9)
  1. DIGOXIN [Suspect]
     Indication: ATRIAL FIBRILLATION
     Dosage: PO
     Route: 048
     Dates: start: 20071101
  2. DIGOXIN [Suspect]
     Dosage: 0.25 MG. DAILY, PO
     Dates: start: 20071205
  3. MICARDIS [Concomitant]
  4. LITHIUM [Concomitant]
  5. IBUPROFEN [Concomitant]
  6. FOLIC ACID [Concomitant]
  7. ASPIRIN [Concomitant]
  8. METHOTREXATE [Concomitant]
  9. HYDROXYCHLOROQUINE [Concomitant]

REACTIONS (19)
  - ABASIA [None]
  - ANTIPSYCHOTIC DRUG LEVEL INCREASED [None]
  - ATAXIA [None]
  - ATRIAL FIBRILLATION [None]
  - BALANCE DISORDER [None]
  - BIPOLAR DISORDER [None]
  - CHEST PAIN [None]
  - DIZZINESS [None]
  - ELECTROCARDIOGRAM ST SEGMENT ABNORMAL [None]
  - GAIT DISTURBANCE [None]
  - ILL-DEFINED DISORDER [None]
  - MALAISE [None]
  - MUSCLE SPASTICITY [None]
  - NAUSEA [None]
  - SICK SINUS SYNDROME [None]
  - SINUS ARREST [None]
  - SINUS BRADYCARDIA [None]
  - SURGERY [None]
  - THERAPEUTIC AGENT TOXICITY [None]
